FAERS Safety Report 13824673 (Version 2)
Quarter: 2017Q3

REPORT INFORMATION
  Report Type: Report from Study
  Country: EG (occurrence: EG)
  Receive Date: 20170802
  Receipt Date: 20170811
  Transmission Date: 20171127
  Serious: Yes (Other)
  Sender: FDA-Public Use
  Company Number: EG-EMD SERONO-8172497

PATIENT
  Age: 29 Year
  Sex: Female

DRUGS (1)
  1. SAIZEN [Suspect]
     Active Substance: SOMATROPIN
     Indication: GROWTH HORMONE DEFICIENCY
     Dates: start: 201705

REACTIONS (5)
  - Hypotonia [Recovering/Resolving]
  - Thyroid disorder [Recovering/Resolving]
  - Hypothalamo-pituitary disorder [Recovering/Resolving]
  - Head discomfort [Recovering/Resolving]
  - Headache [Recovering/Resolving]

NARRATIVE: CASE EVENT DATE: 201705
